FAERS Safety Report 14229213 (Version 1)
Quarter: 2017Q4

REPORT INFORMATION
  Report Type: Spontaneous
  Country: FR (occurrence: FR)
  Receive Date: 20171128
  Receipt Date: 20171128
  Transmission Date: 20180321
  Serious: Yes (Hospitalization)
  Sender: FDA-Public Use
  Company Number: FR-MERCK KGAA-2036116

PATIENT
  Age: 46 Year
  Sex: Female

DRUGS (1)
  1. NOVOTHYROX [Suspect]
     Active Substance: LEVOTHYROXINE SODIUM
     Indication: PRODUCT USED FOR UNKNOWN INDICATION
     Route: 048
     Dates: start: 20170507, end: 20170928

REACTIONS (10)
  - Muscle spasms [Not Recovered/Not Resolved]
  - Anxiety [Not Recovered/Not Resolved]
  - Hypertension [Not Recovered/Not Resolved]
  - Fatigue [Not Recovered/Not Resolved]
  - Diarrhoea [Not Recovered/Not Resolved]
  - Irritability [Not Recovered/Not Resolved]
  - Nausea [Not Recovered/Not Resolved]
  - Tachycardia [Not Recovered/Not Resolved]
  - Weight decreased [Not Recovered/Not Resolved]
  - Dizziness [Not Recovered/Not Resolved]

NARRATIVE: CASE EVENT DATE: 20170725
